FAERS Safety Report 8926418 (Version 2)
Quarter: 2012Q4

REPORT INFORMATION
  Report Type: Report from Study
  Country: US (occurrence: US)
  Receive Date: 20121127
  Receipt Date: 20121231
  Transmission Date: 20130627
  Serious: Yes (Death, Hospitalization, Other)
  Sender: FDA-Public Use
  Company Number: US-ROCHE-691733

PATIENT
  Age: 62 Year
  Sex: Female
  Weight: 65.8 kg

DRUGS (2)
  1. CAPECITABINE [Suspect]
     Indication: BREAST CANCER METASTATIC
     Route: 048
     Dates: start: 20091123, end: 20100329
  2. IXEMPRA [Concomitant]
     Indication: BREAST CANCER METASTATIC
     Route: 042
     Dates: start: 20091123, end: 20100329

REACTIONS (10)
  - Death [Fatal]
  - Pain [Recovering/Resolving]
  - Urinary tract infection [Recovered/Resolved]
  - Pyelonephritis [Recovered/Resolved]
  - Hypokalaemia [Recovered/Resolved]
  - Hypercalcaemia [Recovered/Resolved]
  - Herpes zoster [Recovered/Resolved]
  - Vomiting [Recovered/Resolved]
  - Nausea [Recovered/Resolved]
  - Palmar-plantar erythrodysaesthesia syndrome [Recovered/Resolved]
